FAERS Safety Report 9237923 (Version 1)
Quarter: 2013Q2

REPORT INFORMATION
  Report Type: Spontaneous
  Country: FR (occurrence: None)
  Receive Date: 20130415
  Receipt Date: 20130415
  Transmission Date: 20140414
  Serious: Yes (Hospitalization)
  Sender: FDA-Public Use
  Company Number: 7201954

PATIENT
  Age: 69 Year
  Sex: Female

DRUGS (1)
  1. LEVOTHYROX [Suspect]
     Indication: HYPOTHYROIDISM
     Route: 048
     Dates: start: 2003

REACTIONS (7)
  - Hyperthyroidism [None]
  - Iatrogenic injury [None]
  - Overdose [None]
  - Vomiting [None]
  - General physical condition abnormal [None]
  - Dehydration [None]
  - Diarrhoea [None]
